FAERS Safety Report 5990018-X (Version None)
Quarter: 2008Q4

REPORT INFORMATION
  Report Type: 
  Country: None (occurrence: None)
  Receive Date: 20081209
  Receipt Date: 20081209
  Transmission Date: 20090506
  Serious: Yes (Other)
  Sender: FDA-Public Use
  Company Number: None

PATIENT
  Age: 39 Year
  Sex: Female
  Weight: 56.6996 kg

DRUGS (1)
  1. ACCOLATE [Suspect]
     Indication: SKIN COSMETIC PROCEDURE
     Dosage: 20 MG 2 TIMES
     Dates: start: 20080607, end: 20081020

REACTIONS (2)
  - HEART RATE INCREASED [None]
  - PALPITATIONS [None]
